FAERS Safety Report 8427640-7 (Version None)
Quarter: 2012Q2

REPORT INFORMATION
  Report Type: 
  Country: None (occurrence: None)
  Receive Date: 20120611
  Receipt Date: 20120605
  Transmission Date: 20120825
  Serious: No
  Sender: FDA-Public Use
  Company Number: US-PFIZER INC-2012113295

PATIENT
  Sex: Male

DRUGS (2)
  1. SULFASALAZINE [Suspect]
     Dosage: UNK
  2. PREDNISONE [Suspect]
     Dosage: UNK

REACTIONS (1)
  - HYPERGLYCAEMIA [None]
